FAERS Safety Report 10846316 (Version 2)
Quarter: 2015Q1

REPORT INFORMATION
  Report Type: Spontaneous
  Country: JP (occurrence: JP)
  Receive Date: 20150220
  Receipt Date: 20150225
  Transmission Date: 20150721
  Serious: Yes (Hospitalization)
  Sender: FDA-Public Use
  Company Number: JP-ASTRAZENECA-2015SE13306

PATIENT
  Age: 70 Year
  Sex: Male

DRUGS (6)
  1. GASTER [Concomitant]
     Active Substance: FAMOTIDINE
     Dates: start: 20150212
  2. NEXIUM [Suspect]
     Active Substance: ESOMEPRAZOLE MAGNESIUM
     Indication: GASTRODUODENAL ULCER
     Route: 048
     Dates: start: 20141217, end: 20150201
  3. MARZULENE [Concomitant]
     Active Substance: SODIUM GUALENATE
     Dates: start: 20150108
  4. ALLOID G [Concomitant]
     Active Substance: SODIUM ALGINATE
     Route: 065
     Dates: start: 20141217, end: 20150108
  5. MIYA-BM [Concomitant]
     Active Substance: CLOSTRIDIUM BUTYRICUM SPORES STRAIN M-55
     Dates: start: 20150108
  6. SODIUM RABEPRAZOLE [Suspect]
     Active Substance: RABEPRAZOLE SODIUM
     Indication: GASTRODUODENAL ULCER
     Route: 048
     Dates: start: 20150202, end: 20150206

REACTIONS (2)
  - Renal disorder [Recovered/Resolved]
  - Interstitial lung disease [Recovering/Resolving]

NARRATIVE: CASE EVENT DATE: 20150109
